FAERS Safety Report 15617570 (Version 1)
Quarter: 2018Q4

REPORT INFORMATION
  Report Type: Spontaneous
  Country: US (occurrence: US)
  Receive Date: 20181114
  Receipt Date: 20181114
  Transmission Date: 20190205
  Serious: Yes (Other)
  Sender: FDA-Public Use
  Company Number: None

PATIENT
  Age: 48 Year
  Sex: Female

DRUGS (10)
  1. AZITHROMYCIN 250MG [Concomitant]
     Active Substance: AZITHROMYCIN ANHYDROUS
  2. MULTIVITAMIN [Concomitant]
     Active Substance: VITAMINS
  3. SODIUM CHLORIDE 0.9% NEB [Concomitant]
  4. PANTOPRAZOLE SODIUM. [Concomitant]
     Active Substance: PANTOPRAZOLE SODIUM
  5. KALYDECO [Suspect]
     Active Substance: IVACAFTOR
     Indication: CYSTIC FIBROSIS
     Route: 048
  6. COLISTIMETHATE 150MG [Concomitant]
     Active Substance: COLISTIMETHATE SODIUM
  7. PULMOZYME [Concomitant]
     Active Substance: DORNASE ALFA
  8. LUNESTA [Concomitant]
     Active Substance: ESZOPICLONE
  9. XOPENEX 0.63MG/3ML NEB [Concomitant]
  10. PREDNISONE 5MG [Concomitant]
     Active Substance: PREDNISONE

REACTIONS (1)
  - Antibiotic therapy [None]

NARRATIVE: CASE EVENT DATE: 20181113
